FAERS Safety Report 6923389-8 (Version None)
Quarter: 2010Q3

REPORT INFORMATION
  Report Type: 
  Country: None (occurrence: None)
  Receive Date: 20100813
  Receipt Date: 20100812
  Transmission Date: 20110219
  Serious: Yes (Life-Threatening)
  Sender: FDA-Public Use
  Company Number: AU-MERCK-1008USA01381

PATIENT
  Age: 63 Year
  Sex: Female
  Weight: 53 kg

DRUGS (2)
  1. NOROXIN [Suspect]
     Route: 048
     Dates: start: 20091203, end: 20091223
  2. OMEPRAZOLE [Concomitant]
     Route: 065
     Dates: start: 20081115

REACTIONS (2)
  - AGRANULOCYTOSIS [None]
  - ORAL CANDIDIASIS [None]
